FAERS Safety Report 4559430-X (Version None)
Quarter: 2005Q1

REPORT INFORMATION
  Report Type: 
  Country: None (occurrence: None)
  Receive Date: 20050119
  Receipt Date: 20050113
  Transmission Date: 20050727
  Serious: Yes (Hospitalization)
  Sender: FDA-Public Use
  Company Number: 200510080GDS

PATIENT
  Age: 75 Year
  Sex: Female

DRUGS (2)
  1. ASPIRIN [Suspect]
     Dosage: 100 MG, QD, ORAL
     Route: 048
     Dates: end: 20041211
  2. DILTIAZEM HCL [Concomitant]

REACTIONS (7)
  - ANAEMIA [None]
  - BRADYCARDIA [None]
  - GASTRITIS [None]
  - HYPOTENSION [None]
  - INFLAMMATION [None]
  - MELAENA [None]
  - SYNCOPE [None]
